FAERS Safety Report 4509049-1 (Version None)
Quarter: 2004Q3

REPORT INFORMATION
  Report Type: 
  Country: None (occurrence: None)
  Receive Date: 20040928
  Receipt Date: 20040617
  Transmission Date: 20050211
  Serious: No
  Sender: FDA-Public Use
  Company Number: 04P-163-0264196-00

PATIENT
  Age: 64 Year
  Sex: Male
  Weight: 104.3273 kg

DRUGS (8)
  1. HUMIRA [Suspect]
     Indication: RHEUMATOID ARTHRITIS
     Dosage: 40 MG, SUBCUTANEOUS
     Route: 058
     Dates: start: 20030101, end: 20040601
  2. METHOTREXATE [Concomitant]
  3. VASERETIC [Concomitant]
  4. TERAZOSIN HYDROCHLORIDE [Concomitant]
  5. LA 80'S [Concomitant]
  6. ETODOLAC [Concomitant]
  7. LORAZEPAM [Concomitant]
  8. PAROXETINE HYDROCHLORIDE [Concomitant]

REACTIONS (1)
  - ATRIAL FIBRILLATION [None]
